FAERS Safety Report 24870694 (Version 1)
Quarter: 2025Q1

REPORT INFORMATION
  Report Type: Spontaneous
  Country: CH (occurrence: CH)
  Receive Date: 20250121
  Receipt Date: 20250121
  Transmission Date: 20250409
  Serious: Yes (Other)
  Sender: RANBAXY
  Company Number: CH-SUN PHARMACEUTICAL INDUSTRIES LTD-2025R1-489596

PATIENT
  Age: 30 Year
  Sex: Male

DRUGS (2)
  1. METHADONE [Suspect]
     Active Substance: METHADONE HYDROCHLORIDE
     Indication: SUNCT syndrome
     Route: 065
  2. KETAMINE [Suspect]
     Active Substance: KETAMINE
     Indication: SUNCT syndrome
     Route: 065

REACTIONS (1)
  - Therapy partial responder [Unknown]
